FAERS Safety Report 5543050-4 (Version None)
Quarter: 2007Q4

REPORT INFORMATION
  Report Type: 
  Country: None (occurrence: None)
  Receive Date: 20071210
  Receipt Date: 20071128
  Transmission Date: 20080405
  Serious: Yes (Death, Hospitalization)
  Sender: FDA-Public Use
  Company Number: FR-AMGEN-US223469

PATIENT
  Sex: Male

DRUGS (3)
  1. ENBREL [Suspect]
     Indication: PSORIATIC ARTHROPATHY
     Route: 058
     Dates: start: 20050401, end: 20070201
  2. METHOTREXATE [Suspect]
     Indication: PSORIATIC ARTHROPATHY
     Dosage: 10 MG TOTAL WEEKLY
     Route: 048
     Dates: start: 20041201, end: 20070201
  3. PREDNISONE TAB [Concomitant]
     Dosage: UNKNOWN
     Route: 048

REACTIONS (2)
  - HODGKIN'S DISEASE NODULAR SCLEROSIS STAGE III [None]
  - LIVER FUNCTION TEST ABNORMAL [None]
